FAERS Safety Report 17570757 (Version 4)
Quarter: 2020Q3

REPORT INFORMATION
  Report Type: Report from Study
  Country: US (occurrence: US)
  Receive Date: 20200323
  Receipt Date: 20200709
  Transmission Date: 20201102
  Serious: No
  Sender: FDA-Public Use
  Company Number: NVSC2020US079278

PATIENT
  Age: 59 Year
  Sex: Female

DRUGS (3)
  1. COSENTYX [Suspect]
     Active Substance: SECUKINUMAB
     Indication: PSORIASIS
     Dosage: 300 MG/KG, UNKNOWN
     Route: 058
     Dates: start: 20191101, end: 20200318
  2. COSENTYX [Suspect]
     Active Substance: SECUKINUMAB
     Dosage: UNK
     Route: 065
  3. COSENTYX [Suspect]
     Active Substance: SECUKINUMAB
     Dosage: 300 MG/KG, QMO
     Route: 058
     Dates: start: 20191114, end: 20200519

REACTIONS (5)
  - Pruritus [Recovered/Resolved]
  - Skin exfoliation [Unknown]
  - Skin mass [Recovered/Resolved]
  - Rash erythematous [Unknown]
  - Pain [Recovered/Resolved]

NARRATIVE: CASE EVENT DATE: 20200304
